FAERS Safety Report 20812795 (Version 2)
Quarter: 2023Q1

REPORT INFORMATION
  Report Type: Spontaneous
  Country: US (occurrence: US)
  Receive Date: 20220511
  Receipt Date: 20230220
  Transmission Date: 20230417
  Serious: Yes (Hospitalization, Other)
  Sender: FDA-Public Use
  Company Number: US-BRISTOL-MYERS SQUIBB COMPANY-2022-037542

PATIENT
  Age: 79 Year
  Sex: Male

DRUGS (1)
  1. REVLIMID [Suspect]
     Active Substance: LENALIDOMIDE
     Indication: Plasma cell myeloma
     Dosage: 5MG DAILY ON DAYS 1 TO 21, EVERY 28 DAYS.
     Route: 048
     Dates: start: 20211023

REACTIONS (2)
  - Dizziness [Unknown]
  - Pneumonia [Unknown]

NARRATIVE: CASE EVENT DATE: 20220201
